FAERS Safety Report 16777481 (Version 1)
Quarter: 2019Q3

REPORT INFORMATION
  Report Type: Spontaneous
  Country: CH (occurrence: CH)
  Receive Date: 20190905
  Receipt Date: 20190905
  Transmission Date: 20191005
  Serious: Yes (Other)
  Sender: FDA-Public Use
  Company Number: CH-BAYER-2019-160384

PATIENT
  Age: 35 Year
  Sex: Female

DRUGS (2)
  1. YASMINELLE [Suspect]
     Active Substance: DROSPIRENONE
     Dosage: 1 DF, QD, FOR MANY YEARS
     Route: 048
     Dates: end: 201712
  2. KYLEENA [Suspect]
     Active Substance: LEVONORGESTREL
     Dosage: 17.5 MCG/24HR, CONT
     Route: 015
     Dates: start: 201801

REACTIONS (2)
  - Libido decreased [Recovered/Resolved]
  - Acne pustular [Not Recovered/Not Resolved]

NARRATIVE: CASE EVENT DATE: 2017
